FAERS Safety Report 8788594 (Version 2)
Quarter: 2012Q4

REPORT INFORMATION
  Report Type: 
  Country: US (occurrence: US)
  Receive Date: 20120914
  Receipt Date: 20121016
  Transmission Date: 20130627
  Serious: Yes (Other)
  Sender: FDA-Public Use
  Company Number: US-VERTEX PHARMACEUTICAL INC.-AE-2012-010104

PATIENT
  Age: 59 None
  Sex: Female
  Weight: 73 kg

DRUGS (11)
  1. INCIVEK [Suspect]
     Indication: HEPATITIS C
     Dosage: 750 mg, tid
     Route: 048
  2. RIBASPHERE [Suspect]
     Indication: HEPATITIS C
     Dosage: 200 mg, bid
     Route: 048
     Dates: start: 2012
  3. PEGASYS [Suspect]
     Indication: HEPATITIS C
     Dosage: 180, weekly
     Route: 058
     Dates: start: 2012
  4. LISINOPRIL [Concomitant]
     Route: 048
  5. HYDROCHLOROTHIAZIDE [Concomitant]
     Route: 048
  6. ASCORBIC ACID [Concomitant]
     Dosage: 500 mg, qd
  7. CALCIUM [Concomitant]
     Dosage: 600 mg, qd
  8. VITAMIN D /00107901/ [Concomitant]
     Dosage: 1000 ut, qd
  9. PROMETHAZINE [Concomitant]
  10. PRILOSEC                           /00661201/ [Concomitant]
     Dosage: UNK UNK, qd
  11. FELODIPINE ER [Concomitant]
     Dosage: UNK, qd

REACTIONS (19)
  - Anaemia [Unknown]
  - Inappropriate schedule of drug administration [Recovered/Resolved]
  - Influenza like illness [Unknown]
  - Hypotension [Recovered/Resolved]
  - Decreased appetite [Not Recovered/Not Resolved]
  - Dyspepsia [Unknown]
  - Throat irritation [Not Recovered/Not Resolved]
  - Eructation [Not Recovered/Not Resolved]
  - Pain [Not Recovered/Not Resolved]
  - Chills [Not Recovered/Not Resolved]
  - Feeling cold [Unknown]
  - Asthenia [Not Recovered/Not Resolved]
  - Fatigue [Unknown]
  - Rash generalised [Recovered/Resolved]
  - Rash pruritic [Unknown]
  - Diarrhoea [Not Recovered/Not Resolved]
  - Vomiting [Unknown]
  - Anorectal discomfort [Not Recovered/Not Resolved]
  - Nausea [Unknown]
